FAERS Safety Report 4527917-1 (Version None)
Quarter: 2004Q4

REPORT INFORMATION
  Report Type: 
  Country: None (occurrence: None)
  Receive Date: 20041215
  Receipt Date: 20041207
  Transmission Date: 20050328
  Serious: Yes (Hospitalization)
  Sender: FDA-Public Use
  Company Number: IT-BRISTOL-MYERS SQUIBB COMPANY-12786778

PATIENT
  Age: 44 Year
  Sex: Male

DRUGS (6)
  1. ATAZANAVIR [Suspect]
     Indication: HIV INFECTION
     Route: 048
     Dates: start: 20041012
  2. RITONAVIR [Suspect]
     Indication: HIV INFECTION
     Dosage: INTERRUPTED 07-DEC-2004
     Route: 048
     Dates: start: 20041012
  3. STAVUDINE [Concomitant]
     Dates: start: 20041012, end: 20041207
  4. DIDANOSINE [Concomitant]
     Dosage: ONCE DAILY
     Dates: start: 20041012, end: 20041207
  5. ENFUVIRTIDE [Concomitant]
     Route: 058
     Dates: start: 20041012, end: 20041207
  6. TRIMETHOPRIM + SULFAMETHOXAZOLE [Concomitant]
     Dates: start: 20041012, end: 20041207

REACTIONS (1)
  - PERICARDITIS [None]
